FAERS Safety Report 6580188-7 (Version None)
Quarter: 2010Q1

REPORT INFORMATION
  Report Type: 
  Country: None (occurrence: None)
  Receive Date: 20100203
  Receipt Date: 20100118
  Transmission Date: 20100710
  Serious: Yes (Hospitalization, Other)
  Sender: FDA-Public Use
  Company Number: 2010SP003695

PATIENT
  Age: 62 Year
  Sex: Female

DRUGS (5)
  1. REXER FLAS (MIRTAZAPINE / 01293201 / ) [Suspect]
     Indication: DEPRESSION
     Dosage: 15 MG; QD; PO
     Route: 048
     Dates: start: 20090601, end: 20090802
  2. VANDRAL RETARD (VENLAFAXINE) (VENLAFAXINE HYDROCHLORIDE) [Suspect]
     Indication: DEPRESSION
     Dosage: 150 MG; QD; PO
     Route: 048
     Dates: start: 20081201, end: 20090803
  3. NOCTAMID [Concomitant]
  4. TRANKIMAZIN RETARD [Concomitant]
  5. ZYPREXA [Concomitant]

REACTIONS (7)
  - CARDIAC MURMUR [None]
  - DRUG INTERACTION [None]
  - HYPONATRAEMIC ENCEPHALOPATHY [None]
  - LEFT VENTRICULAR DYSFUNCTION [None]
  - MITRAL VALVE INCOMPETENCE [None]
  - MYOCARDIAL INFARCTION [None]
  - PULMONARY OEDEMA [None]
